FAERS Safety Report 11132429 (Version 2)
Quarter: 2015Q3

REPORT INFORMATION
  Report Type: Report from Study
  Country: KR (occurrence: KR)
  Receive Date: 20150522
  Receipt Date: 20150826
  Transmission Date: 20151125
  Serious: Yes (Hospitalization)
  Sender: FDA-Public Use
  Company Number: KR-SA-2015SA068791

PATIENT
  Age: 73 Year
  Sex: Female
  Weight: 62 kg

DRUGS (2)
  1. LANTUS [Suspect]
     Active Substance: INSULIN GLARGINE
     Indication: DIABETES MELLITUS
     Dosage: DOSE:20 UNIT(S)
     Route: 058
     Dates: start: 20150413
  2. APIDRA [Suspect]
     Active Substance: INSULIN GLULISINE
     Indication: DIABETES MELLITUS
     Dosage: DOSE:4 UNIT(S)
     Route: 058
     Dates: start: 20150413

REACTIONS (3)
  - Glycosylated haemoglobin increased [Unknown]
  - Hyperglycaemia [Unknown]
  - Road traffic accident [Unknown]

NARRATIVE: CASE EVENT DATE: 2015
